FAERS Safety Report 7137181-5 (Version None)
Quarter: 2010Q4

REPORT INFORMATION
  Report Type: 
  Country: None (occurrence: None)
  Receive Date: 20101206
  Receipt Date: 20090808
  Transmission Date: 20110411
  Serious: Yes (Death, Hospitalization)
  Sender: FDA-Public Use
  Company Number: US-ACTELION-A-US2007-14866

PATIENT

DRUGS (1)
  1. TRACLEER [Suspect]
     Indication: PULMONARY ARTERIAL HYPERTENSION
     Route: 048
     Dates: start: 20060627

REACTIONS (5)
  - ABSCESS LIMB [None]
  - BACTERIAL INFECTION [None]
  - CELLULITIS [None]
  - DEATH [None]
  - PANCREATITIS [None]
